FAERS Safety Report 6299283-5 (Version None)
Quarter: 2009Q3

REPORT INFORMATION
  Report Type: 
  Country: None (occurrence: None)
  Receive Date: 20090806
  Receipt Date: 20090803
  Transmission Date: 20100115
  Serious: Yes (Life-Threatening)
  Sender: FDA-Public Use
  Company Number: AU-ASTRAZENECA-2009SE06793

PATIENT
  Age: 80 Year
  Sex: Female

DRUGS (4)
  1. LIGNOCAINE [Suspect]
     Dates: start: 20090127
  2. FENTANYL [Suspect]
  3. HYALASE [Suspect]
     Dates: start: 20090127
  4. MIDAZOLAM HCL [Suspect]

REACTIONS (3)
  - DYSPNOEA [None]
  - HEART RATE INCREASED [None]
  - LOSS OF CONSCIOUSNESS [None]
